FAERS Safety Report 9674801 (Version 2)
Quarter: 2013Q4

REPORT INFORMATION
  Report Type: Spontaneous
  Country: DE (occurrence: DE)
  Receive Date: 20131107
  Receipt Date: 20131107
  Transmission Date: 20140711
  Serious: Yes (Death)
  Sender: FDA-Public Use
  Company Number: DE-BAXTER-2013BAX041430

PATIENT
  Sex: Male

DRUGS (3)
  1. EXTRANEAL [Suspect]
     Indication: PERITONEAL DIALYSIS
     Dosage: ONE BAG
     Route: 033
     Dates: start: 20110506
  2. PHYSIONEAL 35 GLUCOSE 1,36 % W/V 13,6 MG/ML PERITONEALDIALYSEL?SUNG [Suspect]
     Indication: PERITONEAL DIALYSIS
     Dosage: ONE BAG
     Route: 033
     Dates: start: 20110506
  3. PHYSIONEAL 35 GLUCOSE 2,27 % W/V 22,7 MG/ML PERITONEALDIALYSEL?SUNG [Suspect]
     Indication: PERITONEAL DIALYSIS
     Dosage: ONE BAG
     Route: 033
     Dates: start: 20110506

REACTIONS (2)
  - Acute abdomen [Fatal]
  - Angina unstable [Fatal]
